FAERS Safety Report 4334991-4 (Version None)
Quarter: 2004Q2

REPORT INFORMATION
  Report Type: 
  Country: None (occurrence: None)
  Receive Date: 20040408
  Receipt Date: 20040329
  Transmission Date: 20050107
  Serious: Yes (Hospitalization)
  Sender: FDA-Public Use
  Company Number: IT-ROCHE-363043

PATIENT
  Age: 45 Year
  Sex: Male

DRUGS (4)
  1. NEOTIGASON [Suspect]
     Indication: PSORIASIS
     Route: 048
     Dates: start: 20031201, end: 20040320
  2. SINGULAIR [Concomitant]
     Route: 048
  3. COUMADIN [Concomitant]
     Route: 048
  4. FOSIPRES [Concomitant]
     Route: 048
     Dates: start: 20040316, end: 20040320

REACTIONS (1)
  - RHABDOMYOLYSIS [None]
